FAERS Safety Report 12164394 (Version 6)
Quarter: 2021Q3

REPORT INFORMATION
  Report Type: Other
  Country: US (occurrence: US)
  Receive Date: 20160309
  Receipt Date: 20210930
  Transmission Date: 20211014
  Serious: Yes (Other)
  Sender: FDA-Public Use
  Company Number: US-ROCHE-1660698

PATIENT
  Sex: Female

DRUGS (1)
  1. XOLAIR [Suspect]
     Active Substance: OMALIZUMAB
     Indication: CHRONIC SPONTANEOUS URTICARIA
     Route: 058
     Dates: start: 20150917

REACTIONS (7)
  - Urticaria [Unknown]
  - Compression fracture [Unknown]
  - Confusional state [Unknown]
  - Breast cancer [Unknown]
  - Hair growth abnormal [Unknown]
  - Fibromyalgia [Unknown]
  - Arthralgia [Unknown]
